FAERS Safety Report 6285666-6 (Version None)
Quarter: 2009Q3

REPORT INFORMATION
  Report Type: 
  Country: None (occurrence: None)
  Receive Date: 20090724
  Receipt Date: 20090714
  Transmission Date: 20100115
  Serious: Yes (Hospitalization)
  Sender: FDA-Public Use
  Company Number: A-US2008-21243

PATIENT
  Age: 74 Year
  Sex: Female
  Weight: 87 kg

DRUGS (22)
  1. TRACLEER [Suspect]
     Indication: PULMONARY ARTERIAL HYPERTENSION
     Dosage: 125 MG, ORAL
     Route: 048
     Dates: start: 20020814, end: 20080731
  2. DIGOXIN [Suspect]
     Indication: PULMONARY HYPERTENSION
     Dosage: 0.25 MG, QD,
     Dates: start: 20030123, end: 20080701
  3. ESTRA STRENGTH TYLENOL PM(PARACETAMOL, DIPHENHYDRAMINE) [Suspect]
     Indication: INSOMNIA
     Dosage: ORAL
     Route: 048
     Dates: start: 20080630, end: 20080731
  4. NYQUIL(PARACETAMOL, DEXTROMETHORPHAN HYDROBROMIDE, EPHEDRINE SULFATE, [Suspect]
     Indication: DISCOMFORT
     Dosage: ORAL
     Route: 048
     Dates: start: 20080630, end: 20080731
  5. TYLENOL [Suspect]
     Indication: DISCOMFORT
     Dosage: ORAL
     Route: 048
     Dates: start: 20080630, end: 20080731
  6. VENTAVIS [Concomitant]
  7. SYNTHROID [Concomitant]
  8. LORAZEPAM [Concomitant]
  9. MAXZIDE [Concomitant]
  10. COZAAR [Concomitant]
  11. SPIRONOLACTONE [Concomitant]
  12. MULTIVITAMIN [Concomitant]
  13. CALCIUM (CALCIUM) [Concomitant]
  14. URSODIOL [Concomitant]
  15. NASACORT [Concomitant]
  16. AMBIEN [Concomitant]
  17. OXYGEN (OXYGEN) [Concomitant]
  18. LEXAPRO [Concomitant]
  19. WARFARIN SODIUM [Concomitant]
  20. DARVOCET-N (PARACETAMOL, DEXTROPROPOXYPHENE NAPSILATE) [Concomitant]
  21. REVATIO [Concomitant]
  22. AMBRISENTAN (AMBRISENTAN) [Concomitant]

REACTIONS (20)
  - ANXIETY [None]
  - ASTHENIA [None]
  - AUTOIMMUNE HEPATITIS [None]
  - CARDIOACTIVE DRUG LEVEL ABOVE THERAPEUTIC [None]
  - COUGH [None]
  - DECREASED APPETITE [None]
  - DEPRESSION [None]
  - DIARRHOEA [None]
  - DYSPNOEA [None]
  - GALLBLADDER DISORDER [None]
  - HEPATIC CIRRHOSIS [None]
  - HEPATITIS [None]
  - HEPATOTOXICITY [None]
  - LETHARGY [None]
  - PRURITUS [None]
  - RETCHING [None]
  - TEMPERATURE INTOLERANCE [None]
  - THERAPEUTIC AGENT TOXICITY [None]
  - VOMITING [None]
  - WEIGHT DECREASED [None]
